FAERS Safety Report 5990473-5 (Version None)
Quarter: 2008Q4

REPORT INFORMATION
  Report Type: 
  Country: None (occurrence: None)
  Receive Date: 20081211
  Receipt Date: 20081208
  Transmission Date: 20090506
  Serious: Yes (Hospitalization)
  Sender: FDA-Public Use
  Company Number: US-BRISTOL-MYERS SQUIBB COMPANY-14436141

PATIENT
  Age: 53 Year
  Sex: Female

DRUGS (5)
  1. CISPLATIN [Suspect]
     Indication: METASTASES TO LIVER
     Dates: start: 20070801
  2. MITOMYCIN [Suspect]
     Indication: METASTASES TO LIVER
     Dates: start: 20070801
  3. DOXORUBICIN HCL [Suspect]
     Indication: METASTASES TO LIVER
     Dates: start: 20070801
  4. IODIXANOL [Suspect]
     Indication: METASTASES TO LIVER
     Dates: start: 20070801
  5. OCTREOTIDE ACETATE [Concomitant]

REACTIONS (3)
  - ENCEPHALOPATHY [None]
  - PNEUMATOSIS INTESTINALIS [None]
  - PULMONARY HYPERTENSION [None]
